FAERS Safety Report 6708044-1 (Version None)
Quarter: 2010Q2

REPORT INFORMATION
  Report Type: 
  Country: None (occurrence: None)
  Receive Date: 20100428
  Receipt Date: 20100416
  Transmission Date: 20101027
  Serious: Yes (Hospitalization)
  Sender: FDA-Public Use
  Company Number: 2010-00318

PATIENT
  Age: 67 Year
  Sex: Male
  Weight: 101.7 kg

DRUGS (9)
  1. LISINOPRIL [Suspect]
     Indication: HYPERTENSION
     Dates: start: 20091222
  2. DOUBLE-BLIND STUDY DRUG [Suspect]
     Indication: HYPERTENSION
     Dosage: ORAL
     Route: 048
     Dates: start: 20100120, end: 20100206
  3. DOUBLE-BLIND STUDY DRUG [Suspect]
     Indication: HYPERTENSION
     Dosage: ORAL
     Route: 048
     Dates: start: 20100211
  4. SIMVASTATIN [Concomitant]
  5. TRAMADOL [Concomitant]
  6. DIAZEPAM [Concomitant]
  7. OMEPRAZOLE (PRILOSEC) [Concomitant]
  8. AZOR [Concomitant]
  9. MELOXICAM [Concomitant]

REACTIONS (10)
  - ANXIETY [None]
  - BLOOD GLUCOSE INCREASED [None]
  - BLOOD POTASSIUM DECREASED [None]
  - BLOOD SODIUM DECREASED [None]
  - DYSPHAGIA [None]
  - EMOTIONAL DISTRESS [None]
  - GASTRITIS [None]
  - GASTROOESOPHAGEAL REFLUX DISEASE [None]
  - OESOPHAGEAL STENOSIS [None]
  - OESOPHAGITIS [None]
